FAERS Safety Report 22151664 (Version 1)
Quarter: 2023Q1

REPORT INFORMATION
  Report Type: Spontaneous
  Country: GB (occurrence: GB)
  Receive Date: 20230329
  Receipt Date: 20230329
  Transmission Date: 20230418
  Serious: Yes (Hospitalization, Other)
  Sender: FDA-Public Use
  Company Number: None

PATIENT

DRUGS (12)
  1. XCOPRI [Suspect]
     Active Substance: CENOBAMATE
     Indication: Product used for unknown indication
     Dosage: AT NIGHT (50 MG,1 D)
     Route: 048
     Dates: start: 202211
  2. PHENYTOIN SODIUM [Suspect]
     Active Substance: PHENYTOIN SODIUM
     Indication: Product used for unknown indication
     Dosage: AT NIGHT (25 MG,1 D)
     Route: 065
  3. PHENYTOIN SODIUM [Suspect]
     Active Substance: PHENYTOIN SODIUM
     Dosage: AT NIGHT (50 MG,1 D)
     Route: 065
  4. PHENYTOIN SODIUM [Suspect]
     Active Substance: PHENYTOIN SODIUM
     Dosage: AT NIGHT (200 MG,1 D)
     Route: 065
  5. ADCAL                              /00944201/ [Concomitant]
     Indication: Product used for unknown indication
     Dosage: (1 IN 1 D)
     Route: 065
  6. ATENOLOL [Concomitant]
     Active Substance: ATENOLOL
     Indication: Product used for unknown indication
     Dosage: IN THE MORNING (50 MG,1 D)
     Route: 065
  7. ENOXAPARIN [Concomitant]
     Active Substance: ENOXAPARIN
     Indication: Product used for unknown indication
     Dosage: AT TEA TIME (40 MG,1 D)
     Route: 065
  8. FOLIC ACID [Concomitant]
     Active Substance: FOLIC ACID
     Indication: Product used for unknown indication
     Dosage: IN THE MORNING (5 MG,1 D)
     Route: 065
  9. MIDAZOLAM [Concomitant]
     Active Substance: MIDAZOLAM
     Indication: Product used for unknown indication
     Dosage: 10MG/ML CAN BE REPEATED ONCE ONLY (10 MG,AS REQUIRED)
     Route: 065
  10. RUFINAMIDE [Concomitant]
     Active Substance: RUFINAMIDE
     Indication: Product used for unknown indication
     Dosage: 400MG IN THE MORNING AND 600MG AT NIGHT
     Route: 065
  11. SIMVASTATIN [Concomitant]
     Active Substance: SIMVASTATIN
     Indication: Product used for unknown indication
     Dosage: AT NIGHT (80 MG,1 D)
     Route: 065
  12. VALPROATE SODIUM [Concomitant]
     Active Substance: VALPROATE SODIUM
     Indication: Product used for unknown indication
     Dosage: (2 GM,1 D)
     Route: 065

REACTIONS (2)
  - Drug interaction [Unknown]
  - Confusional state [Unknown]

NARRATIVE: CASE EVENT DATE: 20230127
